FAERS Safety Report 5913567-9 (Version None)
Quarter: 2008Q4

REPORT INFORMATION
  Report Type: 
  Country: None (occurrence: None)
  Receive Date: 20081007
  Receipt Date: 20080925
  Transmission Date: 20090506
  Serious: Yes (Hospitalization)
  Sender: FDA-Public Use
  Company Number: THQ2008A01931

PATIENT
  Age: 54 Year
  Sex: Female

DRUGS (5)
  1. PIOGLITAZONE HCL [Suspect]
     Indication: TYPE 2 DIABETES MELLITUS
     Dosage: 30 MG (1 D)
  2. GLIMEPIRIDE [Concomitant]
  3. METFORMIN HYDROCHLORIDE [Concomitant]
  4. ACARBOSE [Concomitant]
  5. PRAVASTATIN [Concomitant]

REACTIONS (8)
  - ASTHENIA [None]
  - CHOLELITHIASIS [None]
  - PLEURAL EFFUSION [None]
  - PULMONARY HYPERTENSION [None]
  - SINUS TACHYCARDIA [None]
  - SWELLING FACE [None]
  - WEIGHT DECREASED [None]
  - WEIGHT INCREASED [None]
